FAERS Safety Report 6038179-0 (Version None)
Quarter: 2009Q1

REPORT INFORMATION
  Report Type: 
  Country: None (occurrence: None)
  Receive Date: 20090115
  Receipt Date: 20090107
  Transmission Date: 20090719
  Serious: Yes (Other)
  Sender: FDA-Public Use
  Company Number: PHEH2009US00496

PATIENT
  Sex: Female

DRUGS (5)
  1. GLEEVEC [Suspect]
     Dosage: 400 MG, UNK
     Dates: start: 20070701, end: 20080101
  2. GLEEVEC [Suspect]
     Dosage: UNK
     Dates: start: 20080501
  3. TYLENOL (CAPLET) [Suspect]
  4. NEXIUM [Concomitant]
  5. SYNTHROID [Concomitant]

REACTIONS (3)
  - ALOPECIA [None]
  - DRUG INTERACTION [None]
  - SURGERY [None]
